FAERS Safety Report 19831736 (Version 2)
Quarter: 2021Q3

REPORT INFORMATION
  Report Type: Spontaneous
  Country: US (occurrence: US)
  Receive Date: 20210914
  Receipt Date: 20210916
  Transmission Date: 20211014
  Serious: No
  Sender: FDA-Public Use
  Company Number: US-VIVUS, INC.-2021V1000036

PATIENT
  Age: 76 Year
  Sex: Male
  Weight: 113.5 kg

DRUGS (1)
  1. QSYMIA [Suspect]
     Active Substance: PHENTERMINE HYDROCHLORIDE\TOPIRAMATE
     Indication: WEIGHT DECREASED
     Dates: start: 2015, end: 2016

REACTIONS (2)
  - Dizziness [Unknown]
  - Constipation [Unknown]
